FAERS Safety Report 6271738-9 (Version None)
Quarter: 2009Q3

REPORT INFORMATION
  Report Type: 
  Country: None (occurrence: None)
  Receive Date: 20090716
  Receipt Date: 20090716
  Transmission Date: 20100115
  Serious: Yes (Other)
  Sender: FDA-Public Use
  Company Number: None

PATIENT
  Sex: Female
  Weight: 68.9467 kg

DRUGS (1)
  1. MIRENA [Suspect]
     Indication: CONTRACEPTION
     Dosage: ONCE- 5 YEARS INTRA-UTERINE
     Route: 015
     Dates: start: 20090629, end: 20090711

REACTIONS (7)
  - ABDOMINAL DISTENSION [None]
  - FURUNCLE [None]
  - MENTAL DISORDER [None]
  - MOOD ALTERED [None]
  - VAGINAL HAEMORRHAGE [None]
  - VISION BLURRED [None]
  - WEIGHT INCREASED [None]
